FAERS Safety Report 9064603 (Version 1)
Quarter: 2013Q1

REPORT INFORMATION
  Report Type: Spontaneous
  Country: US (occurrence: US)
  Receive Date: 20130214
  Receipt Date: 20130214
  Transmission Date: 20140127
  Serious: No
  Sender: FDA-Public Use
  Company Number: US-BIOGENIDEC-2013BI005054

PATIENT
  Age: 57 None
  Sex: Female

DRUGS (6)
  1. AVONEX [Suspect]
     Indication: MULTIPLE SCLEROSIS
     Route: 030
     Dates: start: 20130107
  2. HYDROCODONE [Concomitant]
     Indication: PAIN IN EXTREMITY
     Dates: start: 201203
  3. ZOFRAN [Concomitant]
     Indication: MALAISE
     Dates: start: 201206
  4. BUSPAR [Concomitant]
     Indication: NERVOUSNESS
     Dates: start: 201210
  5. TYLENOL [Concomitant]
     Indication: PREMEDICATION
     Dates: start: 20130107
  6. AMYTRIPTYLLINE [Concomitant]
     Indication: NEUROPATHY PERIPHERAL
     Dates: start: 201203

REACTIONS (7)
  - Swelling face [Recovered/Resolved]
  - Local swelling [Recovered/Resolved]
  - Abdominal distension [Recovered/Resolved]
  - JC virus test positive [Unknown]
  - Nervousness [Unknown]
  - Influenza like illness [Recovered/Resolved]
  - Pain in extremity [Unknown]
